FAERS Safety Report 15173688 (Version 1)
Quarter: 2018Q3

REPORT INFORMATION
  Report Type: Report from Study
  Country: US (occurrence: US)
  Receive Date: 20180720
  Receipt Date: 20180720
  Transmission Date: 20181010
  Serious: No
  Sender: FDA-Public Use
  Company Number: US-AMGEN-USASL2018070109

PATIENT
  Age: 63 Year
  Sex: Male

DRUGS (2)
  1. REPATHA [Suspect]
     Active Substance: EVOLOCUMAB
     Indication: TYPE V HYPERLIPIDAEMIA
     Dosage: 140 MG, Q2WK
     Route: 058
  2. REPATHA [Suspect]
     Active Substance: EVOLOCUMAB
     Indication: RENAL ARTERY ARTERIOSCLEROSIS

REACTIONS (5)
  - Poor quality sleep [Unknown]
  - Vision blurred [Unknown]
  - Balance disorder [Unknown]
  - Asthenia [Unknown]
  - Hypophagia [Unknown]
